FAERS Safety Report 4769082-1 (Version None)
Quarter: 2005Q3

REPORT INFORMATION
  Report Type: 
  Country: None (occurrence: None)
  Receive Date: 20050915
  Receipt Date: 20050907
  Transmission Date: 20060218
  Serious: Yes (Hospitalization)
  Sender: FDA-Public Use
  Company Number: 2005UW13274

PATIENT
  Age: 42 Year
  Sex: Male

DRUGS (4)
  1. SEROQUEL [Suspect]
     Indication: ALCOHOLISM
     Route: 048
     Dates: start: 20050906
  2. SEROQUEL [Interacting]
     Indication: ANXIETY DISORDER
     Route: 048
     Dates: start: 20050906
  3. TRAZODONE [Interacting]
     Indication: ALCOHOLISM
     Route: 048
     Dates: start: 20050906
  4. TRAZODONE [Interacting]
     Indication: ANXIETY DISORDER
     Route: 048
     Dates: start: 20050906

REACTIONS (4)
  - DRUG INTERACTION [None]
  - INTENTIONAL MISUSE [None]
  - OVERDOSE [None]
  - SUICIDE ATTEMPT [None]
